FAERS Safety Report 18376722 (Version 2)
Quarter: 2020Q4

REPORT INFORMATION
  Report Type: Spontaneous
  Country: CA (occurrence: CA)
  Receive Date: 20201013
  Receipt Date: 20201124
  Transmission Date: 20210114
  Serious: Yes (Other)
  Sender: FDA-Public Use
  Company Number: CA-JNJFOC-20201011975

PATIENT
  Sex: Male

DRUGS (41)
  1. FOSAMPRENAVIR [Suspect]
     Active Substance: FOSAMPRENAVIR
     Indication: HIV INFECTION
     Route: 065
  2. RITONAVIR. [Suspect]
     Active Substance: RITONAVIR
     Dosage: 2 DF (100 MG X2), ONCE DAILY
     Route: 065
  3. TACROLIMUS. [Interacting]
     Active Substance: TACROLIMUS
     Indication: IMMUNOSUPPRESSANT DRUG THERAPY
     Route: 065
  4. ABACAVIR. [Suspect]
     Active Substance: ABACAVIR
     Route: 065
  5. LAMIVUDINE. [Suspect]
     Active Substance: LAMIVUDINE
     Indication: HIV INFECTION
     Route: 065
  6. LAMIVUDINE. [Suspect]
     Active Substance: LAMIVUDINE
     Route: 065
  7. MYCOPHENOLATE MOFETIL. [Suspect]
     Active Substance: MYCOPHENOLATE MOFETIL
     Indication: IMMUNOSUPPRESSANT DRUG THERAPY
     Route: 065
  8. TACROLIMUS. [Interacting]
     Active Substance: TACROLIMUS
     Route: 065
  9. TACROLIMUS. [Interacting]
     Active Substance: TACROLIMUS
     Route: 065
  10. ABACAVIR. [Suspect]
     Active Substance: ABACAVIR
     Indication: HIV INFECTION
     Route: 065
  11. CICLOSPORIN [Suspect]
     Active Substance: CYCLOSPORINE
     Indication: IMMUNOSUPPRESSANT DRUG THERAPY
     Route: 065
  12. CICLOSPORIN [Suspect]
     Active Substance: CYCLOSPORINE
     Dosage: UNK UNK, UNKNOWN FREQ.
     Route: 065
  13. COBICISTAT ELVITEGRAVIR EMTRICITABINE TENOFOVIR ALAFENAMIDE FUMARATE [Suspect]
     Active Substance: COBICISTAT\ELVITEGRAVIR\EMTRICITABINE\TENOFOVIR ALAFENAMIDE FUMARATE
     Indication: HIV INFECTION
     Route: 048
  14. PREDNISONE. [Suspect]
     Active Substance: PREDNISONE
     Indication: IMMUNOSUPPRESSANT DRUG THERAPY
     Route: 065
  15. RITONAVIR. [Suspect]
     Active Substance: RITONAVIR
     Dosage: 2 DF (100 MG X2), ONCE DAILY
     Route: 065
  16. RITONAVIR. [Suspect]
     Active Substance: RITONAVIR
     Dosage: 2 DF (100 MG X2), ONCE DAILY
     Route: 065
  17. STAVUDINE. [Suspect]
     Active Substance: STAVUDINE
     Indication: HIV INFECTION
     Route: 048
  18. ABACAVIR. [Suspect]
     Active Substance: ABACAVIR
     Route: 065
  19. LAMIVUDINE. [Suspect]
     Active Substance: LAMIVUDINE
     Dosage: UNK UNK, UNKNOWN FREQ
     Route: 048
  20. RITONAVIR. [Suspect]
     Active Substance: RITONAVIR
     Indication: HIV INFECTION
     Route: 065
  21. ZIDOVUDINE. [Suspect]
     Active Substance: ZIDOVUDINE
     Indication: HIV INFECTION
     Route: 065
  22. TACROLIMUS. [Interacting]
     Active Substance: TACROLIMUS
     Indication: IMMUNOSUPPRESSANT DRUG THERAPY
     Route: 065
  23. TACROLIMUS. [Interacting]
     Active Substance: TACROLIMUS
     Route: 065
  24. PREZISTA [Suspect]
     Active Substance: DARUNAVIR ETHANOLATE
     Indication: HIV INFECTION
     Route: 048
  25. CICLOSPORIN [Suspect]
     Active Substance: CYCLOSPORINE
     Route: 065
  26. CICLOSPORIN [Suspect]
     Active Substance: CYCLOSPORINE
     Route: 065
  27. PREZISTA [Suspect]
     Active Substance: DARUNAVIR ETHANOLATE
     Route: 065
  28. RALTEGRAVIR. [Suspect]
     Active Substance: RALTEGRAVIR
     Indication: HIV INFECTION
     Route: 065
  29. TRIZIVIR [Suspect]
     Active Substance: ABACAVIR SULFATE\LAMIVUDINE\ZIDOVUDINE
     Indication: HIV INFECTION
     Route: 065
  30. TACROLIMUS. [Interacting]
     Active Substance: TACROLIMUS
     Route: 065
  31. PREZISTA [Suspect]
     Active Substance: DARUNAVIR ETHANOLATE
     Route: 065
  32. ABACAVIR. [Suspect]
     Active Substance: ABACAVIR
     Route: 065
  33. CICLOSPORIN [Suspect]
     Active Substance: CYCLOSPORINE
     Dosage: UNK UNK, UNKNOWN FREQ.
     Route: 065
  34. CICLOSPORIN [Suspect]
     Active Substance: CYCLOSPORINE
     Route: 065
  35. RITONAVIR. [Suspect]
     Active Substance: RITONAVIR
     Dosage: 2 DF (100 MG X2), ONCE DAILY
     Route: 065
  36. ATAZANAVIR. [Suspect]
     Active Substance: ATAZANAVIR
     Indication: HIV INFECTION
     Route: 048
  37. INTELENCE [Suspect]
     Active Substance: ETRAVIRINE
     Indication: HIV INFECTION
     Route: 048
  38. CICLOSPORIN [Suspect]
     Active Substance: CYCLOSPORINE
     Dosage: UNK UNK, UNKNOWN FREQ
     Route: 065
  39. LAMIVUDINE. [Suspect]
     Active Substance: LAMIVUDINE
     Route: 048
  40. LAMIVUDINE. [Suspect]
     Active Substance: LAMIVUDINE
     Dosage: UNK UNK, UNKNOWN FREQ
     Route: 065
  41. TRUVADA [Suspect]
     Active Substance: EMTRICITABINE\TENOFOVIR DISOPROXIL FUMARATE
     Indication: HIV INFECTION
     Route: 065

REACTIONS (3)
  - Drug interaction [Unknown]
  - Drug level increased [Unknown]
  - Heart transplant rejection [Unknown]
